FAERS Safety Report 4744655-0 (Version None)
Quarter: 2005Q3

REPORT INFORMATION
  Report Type: 
  Country: None (occurrence: None)
  Receive Date: 20050815
  Receipt Date: 20050804
  Transmission Date: 20060218
  Serious: Yes (Death)
  Sender: FDA-Public Use
  Company Number: US-JNJFOC-20050801258

PATIENT
  Sex: Female

DRUGS (17)
  1. INFLIXIMAB [Suspect]
     Indication: RHEUMATOID ARTHRITIS
     Route: 042
  2. FOLIC ACID [Concomitant]
  3. FOSAMAX [Concomitant]
  4. HYDROCODONE [Concomitant]
  5. MULTI-VITAMIN [Concomitant]
  6. MULTI-VITAMIN [Concomitant]
  7. MULTI-VITAMIN [Concomitant]
  8. MULTI-VITAMIN [Concomitant]
  9. MULTI-VITAMIN [Concomitant]
  10. MULTI-VITAMIN [Concomitant]
  11. MULTI-VITAMIN [Concomitant]
  12. MULTI-VITAMIN [Concomitant]
  13. METHOTREXATE [Concomitant]
  14. CALCIUM GLUCONATE [Concomitant]
  15. AMBIEN [Concomitant]
     Dosage: AT BEDTIME
  16. VICODIN [Concomitant]
  17. VICODIN [Concomitant]

REACTIONS (2)
  - PNEUMONIA [None]
  - PULMONARY FIBROSIS [None]
